FAERS Safety Report 18065753 (Version 3)
Quarter: 2021Q4

REPORT INFORMATION
  Report Type: Spontaneous
  Country: FR (occurrence: FR)
  Receive Date: 20200724
  Receipt Date: 20211221
  Transmission Date: 20220303
  Serious: Yes (Other)
  Sender: FDA-Public Use
  Company Number: FR-GILEAD-2020-0457493

PATIENT
  Age: 63 Year
  Sex: Male
  Weight: 60 kg

DRUGS (4)
  1. BIKTARVY [Suspect]
     Active Substance: BICTEGRAVIR SODIUM\EMTRICITABINE\TENOFOVIR ALAFENAMIDE FUMARATE
     Indication: HIV infection
     Dosage: 1 DOSAGE FORM, QD
     Route: 048
     Dates: start: 20181205
  2. INTELENCE [Concomitant]
     Active Substance: ETRAVIRINE
     Indication: HIV infection
     Dosage: 2 DOSAGE FORM, QD
     Route: 048
     Dates: start: 20181205
  3. CANDESARTAN [Concomitant]
     Active Substance: CANDESARTAN
     Dosage: 1 DOSAGE FORM, QD
     Route: 048
  4. KAYEXALATE [Concomitant]
     Active Substance: SODIUM POLYSTYRENE SULFONATE
     Dosage: 1 DOSAGE FORM, QD
     Route: 048

REACTIONS (2)
  - Renal failure [Recovering/Resolving]
  - Overdose [Unknown]
